FAERS Safety Report 6877429-5 (Version None)
Quarter: 2010Q3

REPORT INFORMATION
  Report Type: 
  Country: None (occurrence: None)
  Receive Date: 20100727
  Receipt Date: 20100226
  Transmission Date: 20110219
  Serious: No
  Sender: FDA-Public Use
  Company Number: US-ABBOTT-09P-163-0601722-00

PATIENT
  Sex: Female

DRUGS (7)
  1. SYNTHROID [Suspect]
     Indication: HYPOTHYROIDISM
     Dates: start: 20020101, end: 20060101
  2. SYNTHROID [Suspect]
     Dates: start: 20060101, end: 20090611
  3. SYNTHROID [Suspect]
     Dates: start: 20060101, end: 20060101
  4. SYNTHROID [Suspect]
     Dates: start: 20090601, end: 20090601
  5. SYNTHROID [Suspect]
     Dates: start: 20090611, end: 20090618
  6. SYNTHROID [Suspect]
     Dates: start: 20100205, end: 20100226
  7. SYNTHROID [Suspect]
     Dates: start: 20100226

REACTIONS (3)
  - DRUG DOSE OMISSION [None]
  - HEADACHE [None]
  - LABORATORY TEST ABNORMAL [None]
